FAERS Safety Report 14161464 (Version 3)
Quarter: 2018Q1

REPORT INFORMATION
  Report Type: Spontaneous
  Country: US (occurrence: US)
  Receive Date: 20171106
  Receipt Date: 20180321
  Transmission Date: 20180508
  Serious: Yes (Death, Hospitalization, Other)
  Sender: FDA-Public Use
  Company Number: US-JNJFOC-20171031886

PATIENT
  Age: 78 Year
  Sex: Male
  Weight: 71.7 kg

DRUGS (6)
  1. ACYCLOVIR. [Concomitant]
     Active Substance: ACYCLOVIR
  2. TAMSULOSIN [Concomitant]
     Active Substance: TAMSULOSIN
  3. BCG [Concomitant]
     Active Substance: BCG VACCINE
  4. BACTRIM [Concomitant]
     Active Substance: SULFAMETHOXAZOLE\TRIMETHOPRIM
  5. LISINOPRIL. [Concomitant]
     Active Substance: LISINOPRIL
  6. DARZALEX [Suspect]
     Active Substance: DARATUMUMAB
     Indication: PLASMA CELL MYELOMA
     Route: 042
     Dates: start: 20170913, end: 20171004

REACTIONS (4)
  - Warm type haemolytic anaemia [Fatal]
  - Crossmatch incompatible [Unknown]
  - Anti-erythrocyte antibody positive [Unknown]
  - Disease progression [Unknown]

NARRATIVE: CASE EVENT DATE: 20171013
